FAERS Safety Report 12902918 (Version 1)
Quarter: 2016Q4

REPORT INFORMATION
  Report Type: Spontaneous
  Country: US (occurrence: US)
  Receive Date: 20161102
  Receipt Date: 20161102
  Transmission Date: 20170207
  Serious: No
  Sender: FDA-Public Use
  Company Number: US-JNJFOC-20160908250

PATIENT
  Age: 38 Year
  Sex: Male
  Weight: 108.86 kg

DRUGS (2)
  1. IMODIUM A-D [Suspect]
     Active Substance: LOPERAMIDE HYDROCHLORIDE
     Indication: DIARRHOEA
     Dosage: DAILY IN THE MORNING WHEN HE WAKES UP
     Route: 048
  2. IMODIUM A-D [Suspect]
     Active Substance: LOPERAMIDE HYDROCHLORIDE
     Indication: DIARRHOEA
     Dosage: NOT MORE THAN 4 TIMES IN 24  HOURS
     Route: 048
     Dates: start: 20160901

REACTIONS (1)
  - Incorrect dose administered [Unknown]
